FAERS Safety Report 19390837 (Version 2)
Quarter: 2021Q4

REPORT INFORMATION
  Report Type: Report from Study
  Country: CO (occurrence: CO)
  Receive Date: 20210608
  Receipt Date: 20211008
  Transmission Date: 20220303
  Serious: Yes (Hospitalization, Congenital Anomaly)
  Sender: FDA-Public Use
  Company Number: NVSC2019CO081730

PATIENT
  Age: 28 Year
  Sex: Male
  Weight: 90 kg

DRUGS (6)
  1. ELTROMBOPAG OLAMINE [Suspect]
     Active Substance: ELTROMBOPAG OLAMINE
     Indication: Aplastic anaemia
     Dosage: 50 MG, QD
     Route: 048
     Dates: start: 20191221
  2. ELTROMBOPAG OLAMINE [Suspect]
     Active Substance: ELTROMBOPAG OLAMINE
     Dosage: 100 MG, QD
     Route: 048
     Dates: start: 20191221
  3. PREDNISOLONE [Concomitant]
     Active Substance: PREDNISOLONE
     Indication: Aplastic anaemia
     Dosage: 50 MG, QD
     Route: 048
     Dates: start: 20191221
  4. OMEPRAZOLE [Concomitant]
     Active Substance: OMEPRAZOLE
     Indication: Gastritis
     Dosage: 20 MG
     Route: 048
     Dates: start: 20191221
  5. ERYTHROPOIETIN [Concomitant]
     Active Substance: ERYTHROPOIETIN
     Indication: Aplastic anaemia
     Dosage: 6000 U
     Route: 058
     Dates: start: 20200113
  6. ACETAMINOPHEN [Concomitant]
     Active Substance: ACETAMINOPHEN
     Indication: Headache
     Dosage: UNK
     Route: 065

REACTIONS (10)
  - Platelet count decreased [Unknown]
  - Serum ferritin increased [Unknown]
  - Pruritus [Unknown]
  - Cytomegalovirus infection [Unknown]
  - Anaemia [Unknown]
  - Haemoglobin decreased [Unknown]
  - Congenital aplastic anaemia [Unknown]
  - Malaise [Unknown]
  - Petechiae [Unknown]
  - White blood cell count decreased [Unknown]

NARRATIVE: CASE EVENT DATE: 20191224
